FAERS Safety Report 25210549 (Version 2)
Quarter: 2025Q2

REPORT INFORMATION
  Report Type: Spontaneous
  Country: US (occurrence: US)
  Receive Date: 20250417
  Receipt Date: 20250424
  Transmission Date: 20250716
  Serious: No
  Sender: PFIZER
  Company Number: US-PFIZER INC-PV202300174552

PATIENT
  Age: 69 Year
  Sex: Female

DRUGS (1)
  1. EUCRISA [Suspect]
     Active Substance: CRISABOROLE
     Indication: Rash
     Route: 061

REACTIONS (4)
  - Off label use [Unknown]
  - Drug effective for unapproved indication [Unknown]
  - Off label use [Unknown]
  - Condition aggravated [Not Recovered/Not Resolved]
